FAERS Safety Report 8158815-2 (Version None)
Quarter: 2012Q1

REPORT INFORMATION
  Report Type: 
  Country: None (occurrence: None)
  Receive Date: 20120223
  Receipt Date: 20120217
  Transmission Date: 20120608
  Serious: Yes (Death, Other)
  Sender: FDA-Public Use
  Company Number: JP-ASTELLAS-2012JP001417

PATIENT
  Age: 58 Year
  Sex: Female

DRUGS (3)
  1. PREDNISOLONE [Concomitant]
     Indication: IMMUNOSUPPRESSANT DRUG THERAPY
     Dosage: 60 MG, UNKNOWN/D
     Route: 065
  2. PROGRAF [Suspect]
     Indication: IMMUNOSUPPRESSANT DRUG THERAPY
     Dosage: 3 MG, UNKNOWN/D
     Route: 065
  3. CYCLOPHOSPHAMIDE [Concomitant]
     Indication: IMMUNOSUPPRESSANT DRUG THERAPY
     Route: 042

REACTIONS (2)
  - BACTERIAL SEPSIS [None]
  - HEPATITIS B [None]
